FAERS Safety Report 19108678 (Version 2)
Quarter: 2021Q2

REPORT INFORMATION
  Report Type: Spontaneous
  Country: JP (occurrence: JP)
  Receive Date: 20210408
  Receipt Date: 20210419
  Transmission Date: 20210717
  Serious: Yes (Hospitalization, Other)
  Sender: FDA-Public Use
  Company Number: JP-ROCHE-2797032

PATIENT
  Age: 78 Year
  Sex: Female

DRUGS (1)
  1. BONVIVA [Suspect]
     Active Substance: IBANDRONATE SODIUM
     Indication: PRODUCT USED FOR UNKNOWN INDICATION
     Route: 042
     Dates: start: 20200326, end: 20210311

REACTIONS (2)
  - Acute phase reaction [Not Recovered/Not Resolved]
  - Meningoencephalitis herpetic [Unknown]

NARRATIVE: CASE EVENT DATE: 20210311
